FAERS Safety Report 6636808-1 (Version None)
Quarter: 2010Q1

REPORT INFORMATION
  Report Type: 
  Country: None (occurrence: None)
  Receive Date: 20100316
  Receipt Date: 20100304
  Transmission Date: 20100710
  Serious: Yes (Other)
  Sender: FDA-Public Use
  Company Number: US-PFIZER INC-2010028879

PATIENT

DRUGS (1)
  1. CHANTIX [Suspect]

REACTIONS (2)
  - INSOMNIA [None]
  - MENTAL DISORDER [None]
